FAERS Safety Report 4793869-2 (Version None)
Quarter: 2005Q4

REPORT INFORMATION
  Report Type: 
  Country: None (occurrence: None)
  Receive Date: 20051006
  Receipt Date: 20050927
  Transmission Date: 20060501
  Serious: Yes (Hospitalization)
  Sender: FDA-Public Use
  Company Number: US-2005-015123

PATIENT
  Age: 55 Year
  Sex: Female

DRUGS (5)
  1. BETASERON [Suspect]
     Indication: SECONDARY PROGRESSIVE MULTIPLE SCLEROSIS
     Dosage: SUBCUTANEOUS
     Route: 058
     Dates: start: 20020730, end: 20030107
  2. ANTI-DIABETICS [Concomitant]
  3. ANTIHYPERTENSIVES [Concomitant]
  4. AZATHIOPRINE [Concomitant]
  5. PREDNISONE [Concomitant]

REACTIONS (5)
  - HALLUCINATION [None]
  - INJECTION SITE INFECTION [None]
  - INJECTION SITE ULCER [None]
  - LOSS OF CONSCIOUSNESS [None]
  - MALAISE [None]
